FAERS Safety Report 12456254 (Version 2)
Quarter: 2017Q3

REPORT INFORMATION
  Report Type: Spontaneous
  Country: KR (occurrence: KR)
  Receive Date: 20160610
  Receipt Date: 20170912
  Transmission Date: 20171127
  Serious: Yes (Hospitalization)
  Sender: FDA-Public Use
  Company Number: KR-ORION CORPORATION ORION PHARMA-ENTC2016-0305

PATIENT
  Age: 75 Year
  Sex: Female

DRUGS (4)
  1. LEVODOPA-CARBIDOPA-ENTACAPONE [Suspect]
     Active Substance: CARBIDOPA\ENTACAPONE\LEVODOPA
     Indication: PARKINSON^S DISEASE
     Dosage: STRENGTH: 150/37.5/200 MG
     Route: 065
  2. QUETIAPINE. [Suspect]
     Active Substance: QUETIAPINE
     Indication: HALLUCINATION
     Dosage: AT NIGHT
     Route: 065
  3. QUETIAPINE. [Suspect]
     Active Substance: QUETIAPINE
     Dosage: UP TO 100 MG
     Route: 065
  4. ROPINIROLE. [Suspect]
     Active Substance: ROPINIROLE
     Indication: PARKINSON^S DISEASE
     Route: 065

REACTIONS (7)
  - Anxiety [Recovered/Resolved]
  - Apathy [Unknown]
  - Abnormal behaviour [Unknown]
  - Hallucination, visual [Recovering/Resolving]
  - Sleep disorder [Unknown]
  - Depression [Unknown]
  - Loss of personal independence in daily activities [Unknown]
